FAERS Safety Report 12104379 (Version 1)
Quarter: 2016Q1

REPORT INFORMATION
  Report Type: Spontaneous
  Country: US (occurrence: US)
  Receive Date: 20160223
  Receipt Date: 20160223
  Transmission Date: 20160526
  Serious: No
  Sender: FDA-Public Use
  Company Number: US-009507513-1512USA005174

PATIENT
  Sex: Female

DRUGS (1)
  1. EMEND [Suspect]
     Active Substance: APREPITANT
     Indication: NAUSEA
     Dosage: 1 DF, QD
     Route: 048
     Dates: end: 20151122

REACTIONS (4)
  - Product packaging issue [Unknown]
  - Drug dose omission [Unknown]
  - No adverse event [Unknown]
  - Product physical issue [Unknown]
